FAERS Safety Report 8076425-2 (Version None)
Quarter: 2012Q1

REPORT INFORMATION
  Report Type: 
  Country: None (occurrence: None)
  Receive Date: 20120127
  Receipt Date: 20120123
  Transmission Date: 20120608
  Serious: Yes (Other)
  Sender: FDA-Public Use
  Company Number: DE-ROCHE-1033124

PATIENT
  Age: 87 Year
  Sex: Female

DRUGS (2)
  1. AVASTIN [Concomitant]
     Indication: COLON CANCER METASTATIC
     Dates: start: 20120105
  2. XELODA [Suspect]
     Indication: COLON CANCER METASTATIC
     Route: 048
     Dates: start: 20120105

REACTIONS (4)
  - LIP DISORDER [None]
  - ORAL DISORDER [None]
  - TONGUE DISORDER [None]
  - TOXIC EPIDERMAL NECROLYSIS [None]
